FAERS Safety Report 10212083 (Version 1)
Quarter: 2014Q2

REPORT INFORMATION
  Report Type: Spontaneous
  Country: US (occurrence: US)
  Receive Date: 20140602
  Receipt Date: 20140602
  Transmission Date: 20141212
  Serious: No
  Sender: FDA-Public Use
  Company Number: US-AMGEN-USASP2014034814

PATIENT
  Age: 51 Year
  Sex: Female

DRUGS (3)
  1. ENBREL [Suspect]
     Indication: RHEUMATOID ARTHRITIS
     Dosage: 50 MG, QWK
     Route: 065
     Dates: start: 20130711
  2. PLAQUENIL                          /00072602/ [Concomitant]
     Dosage: 200 MG, QD FOR ONE WEEK
     Dates: start: 20140428
  3. METHOTREXATE [Concomitant]
     Dosage: SIX TABLETS (2.5 MG EACH) ONCE A WEEK
     Route: 048
     Dates: start: 2003

REACTIONS (3)
  - Diarrhoea [Recovered/Resolved]
  - Nausea [Not Recovered/Not Resolved]
  - Decreased appetite [Not Recovered/Not Resolved]
